FAERS Safety Report 25601036 (Version 1)
Quarter: 2025Q3

REPORT INFORMATION
  Report Type: Other
  Country: IN (occurrence: IN)
  Receive Date: 20250724
  Receipt Date: 20250724
  Transmission Date: 20251021
  Serious: Yes (Hospitalization, Other)
  Sender: ANI
  Company Number: IN-ANIPHARMA-023682

PATIENT
  Age: 96 Year
  Sex: Male

DRUGS (20)
  1. RISPERIDONE [Suspect]
     Active Substance: RISPERIDONE
     Indication: Neuropsychological symptoms
  2. MEMANTINE [Suspect]
     Active Substance: MEMANTINE
     Indication: Neuropsychological symptoms
  3. PREGABALIN [Concomitant]
     Active Substance: PREGABALIN
     Indication: Pain in extremity
     Route: 048
  4. DULOXETINE [Concomitant]
     Active Substance: DULOXETINE
     Indication: Sensory disturbance
  5. QUETIAPINE [Concomitant]
     Active Substance: QUETIAPINE
     Indication: Neuropsychological symptoms
  6. DONEPEZIL [Concomitant]
     Active Substance: DONEPEZIL
     Indication: Neuropsychological symptoms
  7. AMANTADINE [Concomitant]
     Active Substance: AMANTADINE
     Indication: Neuropsychological symptoms
  8. ARMODAFINIL [Concomitant]
     Active Substance: ARMODAFINIL
     Indication: Neuropsychological symptoms
  9. RASAGILINE [Concomitant]
     Active Substance: RASAGILINE
     Indication: Neuropsychological symptoms
  10. TRIHEXYPHENIDYL [Concomitant]
     Active Substance: TRIHEXYPHENIDYL
     Indication: Neuropsychological symptoms
  11. RIVASTIGMINE [Concomitant]
     Active Substance: RIVASTIGMINE
     Indication: Neuropsychological symptoms
  12. PIPERACILLIN SODIUM\TAZOBACTAM SODIUM [Concomitant]
     Active Substance: PIPERACILLIN SODIUM\TAZOBACTAM SODIUM
     Indication: Product used for unknown indication
  13. ACETAMINOPHEN [Concomitant]
     Active Substance: ACETAMINOPHEN
     Indication: Product used for unknown indication
  14. CEFTAZIDIME [Concomitant]
     Active Substance: CEFTAZIDIME
     Indication: Product used for unknown indication
  15. LINEZOLID [Concomitant]
     Active Substance: LINEZOLID
     Indication: Product used for unknown indication
  16. GLYCERIN [Concomitant]
     Active Substance: GLYCERIN
     Indication: Product used for unknown indication
  17. ACYCLOVIR [Concomitant]
     Active Substance: ACYCLOVIR
     Indication: Product used for unknown indication
  18. FLUCONAZOLE [Concomitant]
     Active Substance: FLUCONAZOLE
     Indication: Product used for unknown indication
  19. BROMOCRIPTINE [Concomitant]
     Active Substance: BROMOCRIPTINE
     Indication: Neuropsychological symptoms
  20. QUETIAPINE [Concomitant]
     Active Substance: QUETIAPINE
     Indication: Neuropsychological symptoms

REACTIONS (3)
  - Aphthous ulcer [Recovered/Resolved]
  - Condition aggravated [Recovered/Resolved]
  - Delirium [Recovered/Resolved]
